FAERS Safety Report 5329888-7 (Version None)
Quarter: 2007Q2

REPORT INFORMATION
  Report Type: 
  Country: None (occurrence: None)
  Receive Date: 20070521
  Receipt Date: 20070511
  Transmission Date: 20071010
  Serious: Yes (Hospitalization)
  Sender: FDA-Public Use
  Company Number: US-AVENTIS-200714145GDDC

PATIENT
  Age: 54 Year
  Sex: Male
  Weight: 86.18 kg

DRUGS (5)
  1. TAXOTERE [Suspect]
     Indication: PANCREATIC CARCINOMA
     Route: 042
     Dates: start: 20070129
  2. GEMZAR [Suspect]
     Indication: PANCREATIC CARCINOMA
     Route: 042
     Dates: start: 20070129
  3. XELODA [Suspect]
     Indication: PANCREATIC CARCINOMA
     Dates: start: 20070129
  4. OXYCONTIN [Concomitant]
     Dosage: DOSE: UNK
  5. FENTANYL [Concomitant]
     Dosage: DOSE: UNK

REACTIONS (3)
  - FACE OEDEMA [None]
  - PNEUMOTHORAX [None]
  - SUBCUTANEOUS EMPHYSEMA [None]
